FAERS Safety Report 9448702 (Version 2)
Quarter: 2013Q3

REPORT INFORMATION
  Report Type: Spontaneous
  Country: US (occurrence: US)
  Receive Date: 20130808
  Receipt Date: 20130919
  Transmission Date: 20140515
  Serious: No
  Sender: FDA-Public Use
  Company Number: US-PFIZER INC-2013229425

PATIENT
  Sex: Female

DRUGS (2)
  1. CELEBREX [Suspect]
     Dosage: 4 DF
  2. ACETAMINOPHEN W/HYDROCODONE BITARTRATE [Concomitant]
     Dosage: UNK

REACTIONS (3)
  - Functional gastrointestinal disorder [Unknown]
  - Dizziness [Unknown]
  - Dyspepsia [Unknown]
